FAERS Safety Report 9681289 (Version 1)
Quarter: 2013Q4

REPORT INFORMATION
  Report Type: Spontaneous
  Country: US (occurrence: None)
  Receive Date: 20131108
  Receipt Date: 20131108
  Transmission Date: 20140711
  Serious: Yes (Disabling)
  Sender: FDA-Public Use
  Company Number: None

PATIENT
  Age: 39 Year
  Sex: Male

DRUGS (1)
  1. OMEPRAZOLE [Suspect]
     Indication: GASTROOESOPHAGEAL REFLUX DISEASE
     Dosage: 1 PILL ONCE DAILY TAKEN BY MOUTH
     Route: 048
     Dates: start: 20050103, end: 20130101

REACTIONS (7)
  - Palpitations [None]
  - Arrhythmia [None]
  - Atrial flutter [None]
  - Dyspnoea [None]
  - Dizziness [None]
  - Muscle spasms [None]
  - Muscle spasms [None]
